FAERS Safety Report 7015253-3 (Version None)
Quarter: 2010Q3

REPORT INFORMATION
  Report Type: 
  Country: None (occurrence: None)
  Receive Date: 20100922
  Receipt Date: 20100830
  Transmission Date: 20110219
  Serious: Yes (Other)
  Sender: FDA-Public Use
  Company Number: 018009

PATIENT
  Sex: Female
  Weight: 81.7 kg

DRUGS (5)
  1. KEPPRA [Suspect]
     Indication: CONVULSION
     Dosage: (500 MG BID, THERAPY STARTED OVER 5 YEARS AGO ORAL)
     Route: 048
  2. CITALOPRAM HYDROBROMIDE [Suspect]
     Indication: FEELING ABNORMAL
     Dosage: (20 MG QD ORAL)
     Route: 048
     Dates: start: 20100601, end: 20100701
  3. METOPROLOL TARTRATE [Concomitant]
  4. ASPIRIN [Concomitant]
  5. VITAMIN E /05494901/ [Concomitant]

REACTIONS (6)
  - ABNORMAL DREAMS [None]
  - CONVULSION [None]
  - DEPRESSION [None]
  - HEADACHE [None]
  - INAPPROPRIATE SCHEDULE OF DRUG ADMINISTRATION [None]
  - SUICIDAL IDEATION [None]
